FAERS Safety Report 7979918-9 (Version None)
Quarter: 2011Q4

REPORT INFORMATION
  Report Type: 
  Country: None (occurrence: None)
  Receive Date: 20111214
  Receipt Date: 20111202
  Transmission Date: 20120403
  Serious: Yes (Other)
  Sender: FDA-Public Use
  Company Number: AU-ROCHE-1018695

PATIENT
  Age: 41 Year
  Sex: Female
  Weight: 55.8 kg

DRUGS (6)
  1. SLOW-K [Concomitant]
     Dates: start: 20111007, end: 20111013
  2. TEGRETOL [Concomitant]
     Dates: start: 19870101
  3. ACETAMINOPHEN [Concomitant]
     Dates: start: 20110727
  4. VEMURAFENIB [Suspect]
     Indication: METASTATIC MALIGNANT MELANOMA
     Route: 048
     Dates: start: 20110715, end: 20111202
  5. VOLTAREN [Concomitant]
     Dates: start: 20111104
  6. SLOW-K [Concomitant]
     Dates: start: 20110812, end: 20110816

REACTIONS (1)
  - HYPOKALAEMIA [None]
